FAERS Safety Report 7305428-8 (Version None)
Quarter: 2011Q1

REPORT INFORMATION
  Report Type: 
  Country: None (occurrence: None)
  Receive Date: 20110222
  Receipt Date: 20110210
  Transmission Date: 20110831
  Serious: Yes (Other)
  Sender: FDA-Public Use
  Company Number: US-PFIZER INC-2011030979

PATIENT

DRUGS (1)
  1. PRISTIQ [Suspect]

REACTIONS (2)
  - CROHN'S DISEASE [None]
  - MEDICATION RESIDUE [None]
